FAERS Safety Report 8766711 (Version 5)
Quarter: 2012Q4

REPORT INFORMATION
  Report Type: 
  Country: US (occurrence: US)
  Receive Date: 20120904
  Receipt Date: 20121129
  Transmission Date: 20130627
  Serious: Yes (Other)
  Sender: FDA-Public Use
  Company Number: US-JNJFOC-20120900241

PATIENT
  Age: 55 Year
  Sex: Female
  Weight: 68.49 kg

DRUGS (26)
  1. ZYRTEC IR [Suspect]
     Indication: OROPHARYNGEAL PAIN
     Dosage: 1 AM and 1 PM
     Route: 048
     Dates: start: 20120806, end: 20120807
  2. ZYRTEC IR [Suspect]
     Indication: NASOPHARYNGITIS
     Dosage: 1 AM and 1 PM
     Route: 048
     Dates: start: 20120806, end: 20120807
  3. ZYRTEC IR [Suspect]
     Indication: PRURITUS GENERALISED
     Dosage: 1 AM and 1 PM
     Route: 048
     Dates: start: 20120806, end: 20120807
  4. ALKA SELTZER [Suspect]
     Indication: OROPHARYNGEAL PAIN
     Dosage: 1 packet per day, for 5 days
     Route: 065
     Dates: start: 20120802
  5. DIFLUCAN [Concomitant]
     Indication: PRURITUS
     Dosage: since 3 months
     Route: 065
  6. DIFLUCAN [Concomitant]
     Indication: GASTROINTESTINAL CANDIDIASIS
     Dosage: since 3 months
     Route: 065
  7. CINNAMON [Concomitant]
     Indication: DIABETES MELLITUS INADEQUATE CONTROL
     Dosage: 6 years
     Route: 048
     Dates: start: 20101028
  8. UNKNOWN MEDICATION [Concomitant]
     Indication: FIBROMYALGIA
     Dosage: 6 years
     Route: 065
  9. UNKNOWN MEDICATION [Concomitant]
     Indication: FIBROMYALGIA
     Dosage: 1 pill a day, 6 years
     Route: 065
     Dates: start: 2006
  10. POTASSIUM GLUCONATE [Concomitant]
     Indication: DIURETIC THERAPY
     Dosage: 3 months
     Route: 065
  11. MAGNESIUM OXIDE [Concomitant]
     Indication: GASTROINTESTINAL DISORDER
     Dosage: 4 years
     Route: 065
  12. COQ10 [Concomitant]
     Indication: FUNGAL INFECTION
     Dosage: 1 month
     Route: 048
     Dates: start: 20120215
  13. MELATONIN [Concomitant]
     Indication: SLEEP DISORDER THERAPY
     Dosage: at bed time since 6 years
     Route: 048
     Dates: start: 20101019
  14. CITALOPRAM [Concomitant]
     Indication: ANTIDEPRESSANT THERAPY
     Dosage: one and half daily since 6 years
     Route: 065
  15. FISH OIL [Concomitant]
     Indication: CARDIAC DISORDER
     Dosage: since 6 years
     Route: 065
  16. MAGNESIUM OXIDE [Concomitant]
     Indication: GASTROINTESTINAL DISORDER
     Dosage: 4 years
     Route: 065
  17. PREVACID [Concomitant]
     Indication: PRODUCT USED FOR UNKNOWN INDICATION
     Route: 048
     Dates: start: 20120912
  18. ACIDOPHILUS [Concomitant]
     Indication: PRODUCT USED FOR UNKNOWN INDICATION
     Route: 065
     Dates: start: 20120330
  19. FIORICET (BUTALBITAL ACETAMINOPHEN CAFFEINE) [Concomitant]
     Indication: PAIN
     Route: 065
     Dates: start: 20101019
  20. FIORICET (BUTALBITAL ACETAMINOPHEN CAFFEINE) [Concomitant]
     Indication: PAIN
     Dosage: 1 to half tablets, 4 to 6 hours as needed for pain, maximum 6 tablets a day
     Route: 065
     Dates: start: 20120215
  21. ACETYL L CARNITINE [Concomitant]
     Indication: PRODUCT USED FOR UNKNOWN INDICATION
     Route: 048
     Dates: start: 20120215
  22. OMEGA 3 FATTY ACID [Concomitant]
     Indication: PRODUCT USED FOR UNKNOWN INDICATION
     Route: 048
     Dates: start: 20101028
  23. AN UNKNOWN MEDICATION [Concomitant]
     Indication: PRODUCT USED FOR UNKNOWN INDICATION
     Route: 065
     Dates: start: 20101028
  24. AN UNKNOWN MEDICATION [Concomitant]
     Indication: PRODUCT USED FOR UNKNOWN INDICATION
     Route: 048
     Dates: start: 20101028
  25. ANTIOXIDANT NOS [Concomitant]
     Indication: PRODUCT USED FOR UNKNOWN INDICATION
     Route: 048
     Dates: start: 20101028
  26. BACTRIM (TRIMETHOPRIM, SULPHAMETHOXAZOLE) [Concomitant]
     Indication: PRODUCT USED FOR UNKNOWN INDICATION
     Route: 048

REACTIONS (8)
  - Hyperphagia [Not Recovered/Not Resolved]
  - Anosmia [Not Recovered/Not Resolved]
  - Ageusia [Not Recovered/Not Resolved]
  - Gastrooesophageal reflux disease [Not Recovered/Not Resolved]
  - Overdose [Recovered/Resolved]
  - Anxiety [Not Recovered/Not Resolved]
  - Migraine [Not Recovered/Not Resolved]
  - Drug ineffective for unapproved indication [Unknown]
